FAERS Safety Report 15760804 (Version 1)
Quarter: 2018Q4

REPORT INFORMATION
  Report Type: Spontaneous
  Country: US (occurrence: US)
  Receive Date: 20181226
  Receipt Date: 20181226
  Transmission Date: 20190205
  Serious: No
  Sender: FDA-Public Use
  Company Number: None

PATIENT
  Age: 32 Year
  Sex: Female
  Weight: 90 kg

DRUGS (12)
  1. GABAPENTIN-900MG [Concomitant]
  2. PEPPERMINT OIL [Concomitant]
     Active Substance: PEPPERMINT OIL
  3. GINGER. [Concomitant]
     Active Substance: GINGER
  4. LICORICE. [Concomitant]
     Active Substance: LICORICE
  5. VERAPAMIL 1500 ER [Concomitant]
  6. PAXIL [Concomitant]
     Active Substance: PAROXETINE HYDROCHLORIDE
  7. ENBREL [Concomitant]
     Active Substance: ETANERCEPT
  8. BIOFREEZE TEAS [Concomitant]
  9. AIMOVIG [Suspect]
     Active Substance: ERENUMAB-AOOE
     Indication: MIGRAINE
     Dosage: ?          QUANTITY:2 INJECTION(S);OTHER FREQUENCY:1X MONTHLY;OTHER ROUTE:SUBCUTANEOUS INJECTION?
     Dates: start: 20180911
  10. SULFASALAZINE 1500MG [Concomitant]
  11. DEPAKOTE [Concomitant]
     Active Substance: DIVALPROEX SODIUM
  12. PRILOSEC 40 MG [Concomitant]

REACTIONS (1)
  - Somnolence [None]

NARRATIVE: CASE EVENT DATE: 20181211
